FAERS Safety Report 22651782 (Version 1)
Quarter: 2023Q2

REPORT INFORMATION
  Report Type: Spontaneous
  Country: US (occurrence: US)
  Receive Date: 20230628
  Receipt Date: 20230628
  Transmission Date: 20230721
  Serious: No
  Sender: FDA-Public Use
  Company Number: US-CTI BIOPHARMA-2023US03597

PATIENT

DRUGS (6)
  1. VONJO [Suspect]
     Active Substance: PACRITINIB
     Indication: Myelodysplastic syndrome
     Dosage: 200 MG, BID
     Route: 048
     Dates: start: 20230412
  2. VITAMIN D3 [Concomitant]
     Active Substance: CHOLECALCIFEROL
  3. COBAMAMIDE [Concomitant]
     Active Substance: COBAMAMIDE
  4. DORZOLAMIDE OPTIC [Concomitant]
  5. IRON [Concomitant]
     Active Substance: IRON
  6. XALATAN [Concomitant]
     Active Substance: LATANOPROST

REACTIONS (9)
  - Abdominal discomfort [Unknown]
  - Stomatitis [Unknown]
  - Asthenia [Unknown]
  - Feeling abnormal [Unknown]
  - Off label use [Unknown]
  - Adverse event [Unknown]
  - Dizziness [Unknown]
  - Diarrhoea [Unknown]
  - Nausea [Unknown]
